FAERS Safety Report 15630070 (Version 2)
Quarter: 2018Q4

REPORT INFORMATION
  Report Type: Spontaneous
  Country: US (occurrence: US)
  Receive Date: 20181118
  Receipt Date: 20181213
  Transmission Date: 20190205
  Serious: No
  Sender: FDA-Public Use
  Company Number: US-JNJFOC-20181106343

PATIENT
  Sex: Male

DRUGS (2)
  1. RISPERDAL [Suspect]
     Active Substance: RISPERIDONE
     Indication: SCHIZOPHRENIA
     Dosage: 1 MG, 2 MG, 3 MG
     Route: 048
     Dates: start: 2003, end: 2004
  2. RISPERDAL [Suspect]
     Active Substance: RISPERIDONE
     Indication: SCHIZOPHRENIA
     Dosage: 1 MG, 2 MG, 3 MG
     Route: 048
     Dates: start: 2017

REACTIONS (3)
  - Gynaecomastia [Unknown]
  - Therapy cessation [Unknown]
  - Emotional distress [Unknown]
